FAERS Safety Report 7655427-1 (Version None)
Quarter: 2011Q3

REPORT INFORMATION
  Report Type: 
  Country: None (occurrence: None)
  Receive Date: 20110804
  Receipt Date: 20110727
  Transmission Date: 20111222
  Serious: Yes (Other)
  Sender: FDA-Public Use
  Company Number: US-JNJFOC-20110712422

PATIENT
  Sex: Male
  Weight: 76.2 kg

DRUGS (2)
  1. LOTENSIN [Concomitant]
     Indication: HYPERTENSION
     Route: 048
     Dates: start: 19860101
  2. CONCERTA [Suspect]
     Indication: ATTENTION DEFICIT/HYPERACTIVITY DISORDER
     Route: 048
     Dates: start: 20110501

REACTIONS (2)
  - COLITIS ULCERATIVE [None]
  - LIBIDO DECREASED [None]
